FAERS Safety Report 23262612 (Version 1)
Quarter: 2023Q4

REPORT INFORMATION
  Report Type: Spontaneous
  Country: US (occurrence: None)
  Receive Date: 20231205
  Receipt Date: 20231205
  Transmission Date: 20240110
  Serious: No
  Sender: FDA-Public Use
  Company Number: 2023A262688

PATIENT
  Sex: Female

DRUGS (1)
  1. FARXIGA [Suspect]
     Active Substance: DAPAGLIFLOZIN PROPANEDIOL
     Route: 048

REACTIONS (6)
  - Dysgeusia [Unknown]
  - Thirst [Unknown]
  - Diarrhoea [Unknown]
  - Fatigue [Unknown]
  - Confusional state [Unknown]
  - Weight decreased [Unknown]
